FAERS Safety Report 21672910 (Version 2)
Quarter: 2022Q4

REPORT INFORMATION
  Report Type: Report from Study
  Country: US (occurrence: US)
  Receive Date: 20221202
  Receipt Date: 20221223
  Transmission Date: 20230112
  Serious: Yes (Death, Life-Threatening, Hospitalization, Other)
  Sender: FDA-Public Use
  Company Number: US-AUROBINDO-AUR-APL-2022-050697

PATIENT
  Age: 62 Year
  Sex: Male
  Weight: 109 kg

DRUGS (5)
  1. BELINOSTAT [Suspect]
     Active Substance: BELINOSTAT
     Indication: Product used for unknown indication
     Dosage: 750 MG/M2
     Route: 065
     Dates: start: 20221107
  2. BELINOSTAT [Suspect]
     Active Substance: BELINOSTAT
     Dosage: 750 MG/M2
     Route: 065
     Dates: start: 20221110
  3. DURVALUMAB [Suspect]
     Active Substance: DURVALUMAB
     Indication: Bladder cancer
     Dosage: 1500 MILLIGRAM
     Route: 065
     Dates: start: 20221013, end: 20221013
  4. TREMELIMUMAB [Suspect]
     Active Substance: TREMELIMUMAB
     Indication: Bladder cancer
     Dosage: 300 MILLIGRAM
     Route: 040
     Dates: start: 20221013, end: 20221013
  5. VEDOLIZUMAB [Suspect]
     Active Substance: VEDOLIZUMAB
     Indication: Product used for unknown indication
     Dosage: UNK
     Route: 065
     Dates: start: 20221111

REACTIONS (2)
  - Colitis [Fatal]
  - Diarrhoea [Unknown]

NARRATIVE: CASE EVENT DATE: 20221119
